FAERS Safety Report 14686935 (Version 2)
Quarter: 2018Q3

REPORT INFORMATION
  Report Type: Report from Study
  Country: GB (occurrence: GB)
  Receive Date: 20180327
  Receipt Date: 20180809
  Transmission Date: 20181010
  Serious: Yes (Hospitalization)
  Sender: FDA-Public Use
  Company Number: GB-TEVA-2018-GB-875178

PATIENT
  Age: 53 Year
  Sex: Female

DRUGS (15)
  1. OXYCODONE [Concomitant]
     Active Substance: OXYCODONE
     Indication: ARTHRALGIA
     Dosage: 120 MILLIGRAM DAILY; 60 MG, 2X/DAY:BID
     Route: 048
     Dates: start: 20121113
  2. CYCLIZINE [Concomitant]
     Active Substance: CYCLIZINE
     Indication: NAUSEA
     Dosage: 50 MG, AS REQ^D
     Route: 048
     Dates: start: 20130706
  3. LEVOTHYROXIN [Concomitant]
     Active Substance: LEVOTHYROXINE
     Indication: HYPOTHYROIDISM
     Dosage: 175 MICROGRAM DAILY; 175 ?G, 1X/DAY:QD
     Route: 048
     Dates: start: 20121113
  4. HYDROCORTISONE COMPARATOR [Suspect]
     Active Substance: HYDROCORTISONE
     Indication: ADRENAL INSUFFICIENCY
     Dosage: 60 MILLIGRAM DAILY; 20 MG, 3X/DAY:TID
     Route: 048
     Dates: start: 20140616
  5. ALGINATE DE SODIUM/BICARBONATE DE SODIUM [Concomitant]
     Indication: DYSPEPSIA
     Dosage: 40 ML DAILY; 10 ML, 4X/DAY:QID
     Route: 048
     Dates: start: 20140528
  6. DULOXETINE. [Concomitant]
     Active Substance: DULOXETINE
     Indication: DEPRESSION
     Dosage: 60 MILLIGRAM DAILY; 60 MG, 1X/DAY:QD
     Route: 048
     Dates: start: 20131113
  7. PARACETAMOL [Concomitant]
     Active Substance: ACETAMINOPHEN
     Indication: ARTHRALGIA
     Dosage: 4 GRAM DAILY; 1 G, 4X/DAY:QID
     Route: 048
     Dates: start: 20130706
  8. COLECALCIFEROL [Concomitant]
     Active Substance: CHOLECALCIFEROL
     Indication: PROPHYLAXIS
     Dosage: 2 DOSAGE FORMS DAILY; 1 DF, 2X/DAY:BID
     Route: 048
     Dates: start: 20121113
  9. AMINOPHYLLINE HYDRATE [Concomitant]
     Active Substance: AMINOPHYLLINE
     Indication: ASTHMA
     Dosage: 225 MILLIGRAM DAILY; 225 MG, 1X/DAY:QD
     Route: 048
     Dates: start: 20130426
  10. OXYCODONE [Concomitant]
     Active Substance: OXYCODONE
     Indication: ARTHRALGIA
     Dosage: 20 MG, AS REQ^D
     Route: 048
     Dates: start: 20140606
  11. AMITRIPTYLINE [Concomitant]
     Active Substance: AMITRIPTYLINE
     Indication: ANALGESIC THERAPY
     Dosage: 20 MILLIGRAM DAILY;
     Route: 048
     Dates: start: 20121113
  12. AMITRIPTYLINE [Concomitant]
     Active Substance: AMITRIPTYLINE
     Indication: SEDATIVE THERAPY
  13. PREGABALIN. [Concomitant]
     Active Substance: PREGABALIN
     Indication: NEURALGIA
     Dosage: 600 MILLIGRAM DAILY; 200 MG, 3X/DAY:TID
     Route: 048
     Dates: start: 20121113
  14. HYOSCINE N?BUTYLBROMIDE [Concomitant]
     Active Substance: BUTYLSCOPOLAMINE
     Indication: GASTRIC DISORDER
     Dosage: 30 MILLIGRAM DAILY; 10 MG, 3X/DAY:TID
     Route: 048
     Dates: start: 20140320
  15. AMITRIPTYLINE [Concomitant]
     Active Substance: AMITRIPTYLINE
     Indication: SEDATIVE THERAPY
     Dosage: 20 MILLIGRAM DAILY; 20 MG, 1X/DAY:QD
     Route: 048

REACTIONS (1)
  - Adrenal insufficiency [Recovered/Resolved]

NARRATIVE: CASE EVENT DATE: 20140801
